FAERS Safety Report 5313754-7 (Version None)
Quarter: 2007Q2

REPORT INFORMATION
  Report Type: 
  Country: None (occurrence: None)
  Receive Date: 20070426
  Receipt Date: 20070418
  Transmission Date: 20071010
  Serious: No
  Sender: FDA-Public Use
  Company Number: 2007SP007307

PATIENT
  Age: 65 Year
  Sex: Female

DRUGS (2)
  1. REBETOL [Suspect]
     Indication: HEPATITIS C
     Dosage: 200 MG, QD; PO
     Route: 048
     Dates: start: 20050401, end: 20070401
  2. INTRON A [Suspect]
     Indication: HEPATITIS C
     Dosage: 5 MIU; ; IM
     Route: 030
     Dates: start: 20050401, end: 20070401

REACTIONS (1)
  - DEATH [None]
